FAERS Safety Report 5130847-8 (Version None)
Quarter: 2006Q4

REPORT INFORMATION
  Report Type: 
  Country: None (occurrence: None)
  Receive Date: 20061013
  Receipt Date: 20060417
  Transmission Date: 20070319
  Serious: No
  Sender: FDA-Public Use
  Company Number: S06-USA-01540-01

PATIENT
  Age: 70 Year
  Sex: Female

DRUGS (9)
  1. AEROBID [Suspect]
     Indication: ASTHMA
     Dosage: 2 PUFF QD IH
     Route: 055
     Dates: start: 19960101, end: 20060410
  2. FLOVENT [Suspect]
     Indication: ASTHMA
     Dosage: 2 PUFF QD IH
     Route: 055
     Dates: end: 20060409
  3. FLOVENT [Suspect]
     Indication: ASTHMA
     Dosage: 1 PUFF IH
     Route: 055
     Dates: start: 20060410
  4. SYNTHROID [Concomitant]
  5. VYTORIN [Concomitant]
  6. PAXIL [Concomitant]
  7. KLONOPIN [Concomitant]
  8. ESTRACE [Concomitant]
  9. WYDASE [Concomitant]

REACTIONS (3)
  - HAEMORRHAGE SUBCUTANEOUS [None]
  - IMPAIRED HEALING [None]
  - WOUND [None]
